FAERS Safety Report 24131759 (Version 1)
Quarter: 2024Q3

REPORT INFORMATION
  Report Type: Report from Study
  Country: US (occurrence: US)
  Receive Date: 20240724
  Receipt Date: 20240724
  Transmission Date: 20241016
  Serious: Yes (Other)
  Sender: UCB
  Company Number: US-UCBSA-2024031623

PATIENT
  Age: 62 Year
  Sex: Male
  Weight: 72.1 kg

DRUGS (3)
  1. ROZANOLIXIZUMAB [Suspect]
     Active Substance: ROZANOLIXIZUMAB
     Indication: Myasthenia gravis
     Dosage: 560MG (4ML) VIA SUBCUTANEOUS INFUSION ONCE WEEKLY FOR SIX WEEKS
     Route: 058
     Dates: start: 20240509, end: 202405
  2. MESTINON [Concomitant]
     Active Substance: PYRIDOSTIGMINE BROMIDE
     Indication: Myasthenia gravis
     Dosage: 60 GRAM, 4X/DAY (QID)
     Route: 048
     Dates: start: 202306
  3. ROBINUL [Concomitant]
     Active Substance: GLYCOPYRROLATE
     Indication: Myasthenia gravis
     Dosage: 1 MILLIGRAM, 3X/DAY (TID)
     Route: 048
     Dates: start: 202211

REACTIONS (2)
  - Myasthenia gravis [Recovered/Resolved]
  - Drug ineffective [Unknown]

NARRATIVE: CASE EVENT DATE: 20240501
